FAERS Safety Report 4453711-6 (Version None)
Quarter: 2004Q3

REPORT INFORMATION
  Report Type: 
  Country: None (occurrence: None)
  Receive Date: 20040920
  Receipt Date: 20040903
  Transmission Date: 20050211
  Serious: Yes (Life-Threatening, Other)
  Sender: FDA-Public Use
  Company Number: PHBS2004CA11656

PATIENT
  Age: 0 None
  Sex: Male

DRUGS (9)
  1. DIOVAN [Suspect]
     Indication: HYPERTENSION
     Dosage: UNK, UNK
     Route: 048
     Dates: start: 20040826, end: 20040831
  2. LITHIUM [Concomitant]
     Dosage: 300 MG, BID
  3. ASPIRIN [Concomitant]
     Dosage: 325 MG, QD
  4. ALTACE [Concomitant]
     Dosage: 20 MG, QD
  5. LIPITOR [Concomitant]
     Dosage: 10 MG, QD
  6. TENORMIN [Concomitant]
     Dosage: 100 MG, QD
  7. NORVASC [Concomitant]
     Dosage: 10 MG, QD
  8. PANTOLOC [Concomitant]
     Dosage: 40 MG, UNK
  9. TERAZOSIN HCL [Concomitant]
     Dosage: 5 MG, UNK

REACTIONS (5)
  - COORDINATION ABNORMAL [None]
  - DIARRHOEA [None]
  - DRY MOUTH [None]
  - FATIGUE [None]
  - TREMOR [None]
